FAERS Safety Report 18973805 (Version 2)
Quarter: 2021Q2

REPORT INFORMATION
  Report Type: Spontaneous
  Country: US (occurrence: US)
  Receive Date: 20210305
  Receipt Date: 20210412
  Transmission Date: 20210717
  Serious: Yes (Other)
  Sender: FDA-Public Use
  Company Number: US-GILEAD-2021-0519079

PATIENT
  Age: 61 Year
  Sex: Male
  Weight: 116.1 kg

DRUGS (74)
  1. BELBUCA [Concomitant]
     Active Substance: BUPRENORPHINE HYDROCHLORIDE
  2. CARBIDOPA/LEVODOPA [Concomitant]
     Active Substance: CARBIDOPA\LEVODOPA
  3. PROMETHAZINE [Concomitant]
     Active Substance: PROMETHAZINE HYDROCHLORIDE
  4. XANAX [Concomitant]
     Active Substance: ALPRAZOLAM
  5. OMEPRAZOLE. [Concomitant]
     Active Substance: OMEPRAZOLE
  6. PHENAZOPYRIDINE. [Concomitant]
     Active Substance: PHENAZOPYRIDINE
  7. TRIMETHOPRIM SULFAMETHOXAZOLE [Concomitant]
     Active Substance: SULFAMETHOXAZOLE\TRIMETHOPRIM
  8. METHYLPRED [Concomitant]
     Active Substance: METHYLPREDNISOLONE
  9. AMOXI CLAV [Concomitant]
     Active Substance: AMOXICILLIN\CLAVULANATE POTASSIUM
  10. AMITIZA [Concomitant]
     Active Substance: LUBIPROSTONE
  11. ATRIPLA [Suspect]
     Active Substance: EFAVIRENZ\EMTRICITABINE\TENOFOVIR DISOPROXIL FUMARATE
     Dosage: UNK
     Route: 048
     Dates: start: 200708
  12. AMITRIPTYLINE [Concomitant]
     Active Substance: AMITRIPTYLINE
  13. DIAZEPAM. [Concomitant]
     Active Substance: DIAZEPAM
  14. DICLOFENAC [Concomitant]
     Active Substance: DICLOFENAC
  15. OXYCODONE [Concomitant]
     Active Substance: OXYCODONE
  16. METHADONE [Concomitant]
     Active Substance: METHADONE HYDROCHLORIDE
  17. METOCLOPRAMIDE. [Concomitant]
     Active Substance: METOCLOPRAMIDE
  18. FLUOXETINE [Concomitant]
     Active Substance: FLUOXETINE HYDROCHLORIDE
  19. EPIVIR [Concomitant]
     Active Substance: LAMIVUDINE
  20. AZO?CRANBERRY [Concomitant]
  21. CALCIUM [Concomitant]
     Active Substance: CALCIUM
  22. VALACYCLOVIR [Concomitant]
     Active Substance: VALACYCLOVIR HYDROCHLORIDE
  23. VASCEPA [Concomitant]
     Active Substance: ICOSAPENT ETHYL
  24. VITAMIN D3 [Concomitant]
     Active Substance: CHOLECALCIFEROL
  25. MORPHINE [Concomitant]
     Active Substance: MORPHINE
  26. AZITHROMYCIN ANHYDROUS. [Concomitant]
     Active Substance: AZITHROMYCIN ANHYDROUS
  27. PROZAC [Concomitant]
     Active Substance: FLUOXETINE HYDROCHLORIDE
  28. EPIPEN [Concomitant]
     Active Substance: EPINEPHRINE
  29. DULERA [Concomitant]
     Active Substance: FORMOTEROL FUMARATE DIHYDRATE\MOMETASONE FUROATE
  30. VIREAD [Suspect]
     Active Substance: TENOFOVIR DISOPROXIL FUMARATE
     Indication: HIV INFECTION
     Dosage: UNK
     Route: 048
     Dates: start: 2001, end: 2007
  31. LACTULOSE. [Concomitant]
     Active Substance: LACTULOSE
  32. RETROVIR [Concomitant]
     Active Substance: ZIDOVUDINE
  33. TIZANIDINE. [Concomitant]
     Active Substance: TIZANIDINE
  34. XYOSTED [Concomitant]
     Active Substance: TESTOSTERONE ENANTHATE
  35. ENDOCET [Concomitant]
     Active Substance: ACETAMINOPHEN\OXYCODONE HYDROCHLORIDE
  36. KETOROLAC [Concomitant]
     Active Substance: KETOROLAC TROMETHAMINE
  37. VIRAMUNE [Concomitant]
     Active Substance: NEVIRAPINE
  38. QUETIAPINE. [Concomitant]
     Active Substance: QUETIAPINE
  39. RANITIDINE. [Concomitant]
     Active Substance: RANITIDINE
  40. TOVIAZ [Concomitant]
     Active Substance: FESOTERODINE FUMARATE
  41. PRAVASTATIN. [Concomitant]
     Active Substance: PRAVASTATIN
  42. NEVIRAPINE. [Concomitant]
     Active Substance: NEVIRAPINE
  43. ZANTAC [Concomitant]
     Active Substance: RANITIDINE HYDROCHLORIDE
  44. SPIRIVA [Concomitant]
     Active Substance: TIOTROPIUM BROMIDE MONOHYDRATE
  45. ANORO ELLIPTA [Concomitant]
     Active Substance: UMECLIDINIUM BROMIDE\VILANTEROL TRIFENATATE
  46. FOLIC ACID. [Concomitant]
     Active Substance: FOLIC ACID
  47. HYDROCHLOROTHIAZIDE. [Concomitant]
     Active Substance: HYDROCHLOROTHIAZIDE
  48. LINZESS [Concomitant]
     Active Substance: LINACLOTIDE
  49. SENNA [Concomitant]
     Active Substance: SENNA LEAF\SENNOSIDES\SENNOSIDES A AND B
  50. OXYMORPHONE [Concomitant]
     Active Substance: OXYMORPHONE
  51. FENTANYL. [Concomitant]
     Active Substance: FENTANYL
  52. HYDROCODONE/ACETAMINOPHEN [Concomitant]
     Active Substance: ACETAMINOPHEN\HYDROCODONE
  53. MELOXICAM. [Concomitant]
     Active Substance: MELOXICAM
  54. CIPROFLOXACIN. [Concomitant]
     Active Substance: CIPROFLOXACIN
  55. LEVOFLOXACIN. [Concomitant]
     Active Substance: LEVOFLOXACIN
  56. LAMIVUDINE. [Concomitant]
     Active Substance: LAMIVUDINE
  57. ATRIPLA [Suspect]
     Active Substance: EFAVIRENZ\EMTRICITABINE\TENOFOVIR DISOPROXIL FUMARATE
     Indication: HIV INFECTION
     Dosage: UNK
     Route: 048
     Dates: start: 2006
  58. GABAPENTIN. [Concomitant]
     Active Substance: GABAPENTIN
  59. ACETAMINOPHEN. [Concomitant]
     Active Substance: ACETAMINOPHEN
  60. ZOLPIDEM [Concomitant]
     Active Substance: ZOLPIDEM TARTRATE
  61. CALCIUM + VIT D [Concomitant]
     Active Substance: CALCIUM\VITAMIN D
  62. BUPROPION. [Concomitant]
     Active Substance: BUPROPION
  63. FAMOTIDINE. [Concomitant]
     Active Substance: FAMOTIDINE
  64. FLUTICASONE. [Concomitant]
     Active Substance: FLUTICASONE
  65. HYDROCORTISONE. [Concomitant]
     Active Substance: HYDROCORTISONE
  66. SOLU?CORTEF [Concomitant]
     Active Substance: HYDROCORTISONE SODIUM SUCCINATE
  67. SUMATRIPTAN. [Concomitant]
     Active Substance: SUMATRIPTAN
  68. TESTOSTERONE. [Concomitant]
     Active Substance: TESTOSTERONE
  69. MORPHINE SULPHATE [Concomitant]
     Active Substance: MORPHINE SULFATE
  70. VITAMIN B12 [Concomitant]
     Active Substance: CYANOCOBALAMIN
  71. METRONIDAZOL [METRONIDAZOLE] [Concomitant]
     Active Substance: METRONIDAZOLE
  72. CLOBETASOL [Concomitant]
     Active Substance: CLOBETASOL
  73. CELEBREX [Concomitant]
     Active Substance: CELECOXIB
  74. NABUMETONE. [Concomitant]
     Active Substance: NABUMETONE

REACTIONS (7)
  - Chronic kidney disease [Not Recovered/Not Resolved]
  - Foot fracture [Not Recovered/Not Resolved]
  - Osteoporosis [Not Recovered/Not Resolved]
  - Pain [Not Recovered/Not Resolved]
  - Anhedonia [Not Recovered/Not Resolved]
  - Anxiety [Not Recovered/Not Resolved]
  - Emotional distress [Not Recovered/Not Resolved]

NARRATIVE: CASE EVENT DATE: 2012
